FAERS Safety Report 25995477 (Version 1)
Quarter: 2025Q4

REPORT INFORMATION
  Report Type: Spontaneous
  Country: US (occurrence: None)
  Receive Date: 20251103
  Receipt Date: 20251103
  Transmission Date: 20260118
  Serious: No
  Sender: FDA-CTU
  Company Number: None

PATIENT
  Age: 39 Year
  Sex: Female
  Weight: 112 kg

DRUGS (1)
  1. ADBRY [Suspect]
     Active Substance: TRALOKINUMAB-LDRM
     Indication: Dermatitis atopic
     Dosage: FREQUENCY : EVERY OTHER WEEK;?
     Route: 058
     Dates: start: 20231110

REACTIONS (7)
  - Drug intolerance [None]
  - Injection site pain [None]
  - Injection site erythema [None]
  - Injection site swelling [None]
  - Injection site pain [None]
  - Injection site bruising [None]
  - Drug ineffective [None]
